FAERS Safety Report 25230116 (Version 1)
Quarter: 2025Q2

REPORT INFORMATION
  Report Type: Report from Study
  Country: US (occurrence: US)
  Receive Date: 20250423
  Receipt Date: 20250423
  Transmission Date: 20250716
  Serious: Yes (Hospitalization)
  Sender: GILEAD
  Company Number: US-GILEAD-2025-0710998

PATIENT
  Age: 4 Year
  Sex: Male

DRUGS (12)
  1. AZTREONAM LYSINE [Suspect]
     Active Substance: AZTREONAM LYSINE
     Indication: Bacterial disease carrier
     Dosage: 75 MG, TID (1 VIAL (75 MG) 3 TIMES A DAY, 28 DAYS ON 28 DAYS OFF )
     Route: 055
  2. CREON [Concomitant]
     Active Substance: PANCRELIPASE AMYLASE\PANCRELIPASE LIPASE\PANCRELIPASE PROTEASE
  3. PULMICORT TURBUHALER [Concomitant]
     Active Substance: BUDESONIDE
  4. SODIUM CHLORIDE [Concomitant]
     Active Substance: SODIUM CHLORIDE
  5. ALBUTEROL SULFATE [Concomitant]
     Active Substance: ALBUTEROL SULFATE
  6. TOBRAMYCIN SULFATE [Concomitant]
     Active Substance: TOBRAMYCIN SULFATE
  7. ERYTHROMYCIN [Concomitant]
     Active Substance: ERYTHROMYCIN
  8. REGLAN [Concomitant]
     Active Substance: METOCLOPRAMIDE HYDROCHLORIDE
  9. KONVOMEP [Concomitant]
     Active Substance: OMEPRAZOLE\SODIUM BICARBONATE
  10. SODIUM BICARBONATE [Concomitant]
     Active Substance: SODIUM BICARBONATE
  11. GLYCOPYRROLATE [Concomitant]
     Active Substance: GLYCOPYRROLATE
  12. ALBUTEROL SULFATE [Concomitant]
     Active Substance: ALBUTEROL SULFATE

REACTIONS (3)
  - Respiratory syncytial virus infection [Unknown]
  - Product use in unapproved indication [Not Recovered/Not Resolved]
  - Product use issue [Not Recovered/Not Resolved]

NARRATIVE: CASE EVENT DATE: 20250301
